FAERS Safety Report 7291868-2 (Version None)
Quarter: 2011Q1

REPORT INFORMATION
  Report Type: 
  Country: None (occurrence: None)
  Receive Date: 20110214
  Receipt Date: 20110209
  Transmission Date: 20110831
  Serious: Yes (Hospitalization, Other)
  Sender: FDA-Public Use
  Company Number: US-ABBOTT-11P-163-0695591-00

PATIENT
  Sex: Female
  Weight: 70.37 kg

DRUGS (9)
  1. COREG [Concomitant]
     Indication: HYPERTENSION
  2. PRILOSEC [Concomitant]
     Indication: PRODUCT USED FOR UNKNOWN INDICATION
  3. PREDNISONE TAB [Concomitant]
     Indication: RHEUMATOID ARTHRITIS
  4. ZOCOR [Concomitant]
     Indication: BLOOD CHOLESTEROL INCREASED
  5. HUMIRA [Suspect]
     Indication: RHEUMATOID ARTHRITIS
     Dates: start: 20050101
  6. ASPIRIN [Concomitant]
     Indication: CARDIAC DISORDER
     Dosage: WITH FOOD
  7. MULTIPLE VITAMINS [Concomitant]
     Indication: VITAMIN SUPPLEMENTATION
  8. ALDACTONE [Concomitant]
     Indication: HYPERTENSION
  9. COZAAR [Concomitant]
     Indication: HYPERTENSION

REACTIONS (9)
  - DIABETIC KETOACIDOSIS [None]
  - GASTROENTERITIS [None]
  - DEHYDRATION [None]
  - RENAL FAILURE ACUTE [None]
  - HEPATIC ENZYME INCREASED [None]
  - OTITIS EXTERNA [None]
  - KLEBSIELLA INFECTION [None]
  - NASOPHARYNGITIS [None]
  - WHITE BLOOD CELL COUNT INCREASED [None]
